FAERS Safety Report 6964670-6 (Version None)
Quarter: 2010Q3

REPORT INFORMATION
  Report Type: 
  Country: None (occurrence: None)
  Receive Date: 20100903
  Receipt Date: 20100827
  Transmission Date: 20110219
  Serious: Yes (Other)
  Sender: FDA-Public Use
  Company Number: GR-PFIZER INC-2010108840

PATIENT
  Age: 49 Year
  Sex: Female

DRUGS (3)
  1. MEDROL [Suspect]
     Indication: LICHEN PLANUS
     Dosage: 18 MG, 3X/DAY
     Route: 048
     Dates: start: 20100827
  2. XANAX [Concomitant]
     Indication: LICHEN PLANUS
     Dosage: 1/4 OF 0.25 MG TABLET, UNK
     Route: 048
     Dates: start: 20100826
  3. PARIET [Concomitant]
     Indication: PROPHYLAXIS
     Dosage: 1 DF, UNK
     Route: 048
     Dates: start: 20100827

REACTIONS (5)
  - BLOOD PRESSURE INCREASED [None]
  - CHOKING SENSATION [None]
  - DYSPHAGIA [None]
  - DYSPNOEA [None]
  - TACHYCARDIA [None]
